FAERS Safety Report 5151817-X (Version None)
Quarter: 2006Q4

REPORT INFORMATION
  Report Type: 
  Country: None (occurrence: None)
  Receive Date: 20061108
  Receipt Date: 20061025
  Transmission Date: 20070319
  Serious: No
  Sender: FDA-Public Use
  Company Number: US200601001127

PATIENT
  Age: 55 Year
  Sex: Female

DRUGS (3)
  1. FORTEO [Suspect]
     Dates: start: 20050401, end: 20051201
  2. FORTEO [Suspect]
     Dates: start: 20060101
  3. FORTEO PEN (250MCG/ML) (FORTEO PEN) PEN, DISPOSABLE [Concomitant]

REACTIONS (1)
  - CHONDROMA [None]
